FAERS Safety Report 5027308-3 (Version None)
Quarter: 2006Q2

REPORT INFORMATION
  Report Type: 
  Country: None (occurrence: None)
  Receive Date: 20060501
  Receipt Date: 20060213
  Transmission Date: 20061013
  Serious: No
  Sender: FDA-Public Use
  Company Number: 2006PV008620

PATIENT
  Age: 37 Year
  Sex: Male

DRUGS (1)
  1. SYMLIN INJECTION (0.6 MG/ML) [Suspect]
     Indication: DIABETES MELLITUS INSULIN-DEPENDENT
     Dosage: SC
     Route: 058

REACTIONS (2)
  - NAUSEA [None]
  - WEIGHT DECREASED [None]
